FAERS Safety Report 13388171 (Version 1)
Quarter: 2017Q1

REPORT INFORMATION
  Report Type: Spontaneous
  Country: US (occurrence: US)
  Receive Date: 20170330
  Receipt Date: 20170330
  Transmission Date: 20170429
  Serious: Yes (Life-Threatening, Hospitalization, Other)
  Sender: FDA-Public Use
  Company Number: PHHY2017US042464

PATIENT
  Age: 17 Year
  Sex: Male

DRUGS (2)
  1. METOPROLOL. [Suspect]
     Active Substance: METOPROLOL
     Indication: PRODUCT USED FOR UNKNOWN INDICATION
     Route: 065
  2. AMLODIPINE [Suspect]
     Active Substance: AMLODIPINE BESYLATE
     Indication: PRODUCT USED FOR UNKNOWN INDICATION
     Route: 065

REACTIONS (12)
  - Cardiac arrest [Recovered/Resolved]
  - Hypotension [Not Recovered/Not Resolved]
  - Dysarthria [Unknown]
  - Suicide attempt [Unknown]
  - Gait disturbance [Unknown]
  - Bradycardia [Unknown]
  - Atrioventricular block first degree [Unknown]
  - Overdose [Unknown]
  - Acidosis [Unknown]
  - Circulatory collapse [Unknown]
  - Lethargy [Unknown]
  - Mental status changes [Not Recovered/Not Resolved]
